FAERS Safety Report 6166111-8 (Version None)
Quarter: 2009Q2

REPORT INFORMATION
  Report Type: 
  Country: None (occurrence: None)
  Receive Date: 20090422
  Receipt Date: 20090422
  Transmission Date: 20091009
  Serious: No
  Sender: FDA-Public Use
  Company Number: None

PATIENT
  Age: 69 Year
  Sex: Female

DRUGS (2)
  1. FENTANYL CITRATE [Suspect]
     Dosage: ;100.0 MICROGRAM
     Dates: start: 20081030, end: 20081030
  2. ALBUTEROL;;;ANTIASTHMA/BRONCHODILATORS; INHALATIONS;; [Suspect]
     Dosage: 2.5 MILLIGRAM(S);1;1
     Dates: start: 20081020, end: 20081020

REACTIONS (2)
  - DYSKINESIA [None]
  - PRURITUS [None]
